FAERS Safety Report 8092873-9 (Version None)
Quarter: 2012Q1

REPORT INFORMATION
  Report Type: 
  Country: None (occurrence: None)
  Receive Date: 20120128
  Receipt Date: 20110726
  Transmission Date: 20120608
  Serious: Yes (Other)
  Sender: FDA-Public Use
  Company Number: US-ABBOTT-11P-163-0841832-00

PATIENT
  Sex: Female
  Weight: 77.18 kg

DRUGS (6)
  1. HUMIRA [Suspect]
  2. HUMIRA [Suspect]
     Indication: RHEUMATOID ARTHRITIS
     Dates: start: 20090101
  3. HORMONE CREAM [Concomitant]
     Indication: BLADDER DISORDER
     Dosage: ON ARMS
  4. HORMONE CREAM [Concomitant]
     Indication: EMOTIONAL DISORDER
  5. HUMIRA [Suspect]
     Indication: RHEUMATOID ARTHRITIS
     Dates: start: 19990101, end: 20090101
  6. METHOTREXATE [Suspect]
     Indication: RHEUMATOID ARTHRITIS
     Dates: start: 19960101, end: 20110101

REACTIONS (8)
  - HYPERTENSION [None]
  - HYPOACUSIS [None]
  - PSORIASIS [None]
  - ECZEMA [None]
  - MUSCLE SPASMS [None]
  - ARTHRALGIA [None]
  - HYPOTHYROIDISM [None]
  - LIP AND/OR ORAL CAVITY CANCER [None]
